FAERS Safety Report 23408882 (Version 1)
Quarter: 2024Q1

REPORT INFORMATION
  Report Type: Spontaneous
  Country: FR (occurrence: FR)
  Receive Date: 20240117
  Receipt Date: 20240117
  Transmission Date: 20240410
  Serious: Yes (Hospitalization, Other)
  Sender: FDA-Public Use
  Company Number: FR-AFSSAPS-NY2023001848

PATIENT
  Age: 67 Year
  Sex: Male
  Weight: 104 kg

DRUGS (9)
  1. FUROSEMIDE [Interacting]
     Active Substance: FUROSEMIDE
     Indication: Hypertension
     Dosage: 20 MILLIGRAM, ONCE A DAY
     Route: 048
  2. METFORMIN [Interacting]
     Active Substance: METFORMIN HYDROCHLORIDE
     Indication: Type 2 diabetes mellitus
     Dosage: 1000 MILLIGRAM, ONCE A DAY
     Route: 048
     Dates: end: 20220118
  3. PERINDOPRIL [Interacting]
     Active Substance: PERINDOPRIL
     Indication: Hypertension
     Dosage: 4 MILLIGRAM, ONCE A DAY
     Route: 048
     Dates: end: 20220118
  4. AMLODIPINE [Concomitant]
     Active Substance: AMLODIPINE BESYLATE
     Indication: Hypertension
     Dosage: UNK(NON DOCUMENTEE)
     Route: 048
  5. AMIODARONE [Concomitant]
     Active Substance: AMIODARONE
     Indication: Atrial fibrillation
     Dosage: 200 MILLIGRAM, ONCE A DAY
     Route: 048
  6. TOUJEO [Concomitant]
     Active Substance: INSULIN GLARGINE
     Indication: Type 2 diabetes mellitus
     Dosage: UNK (SELON GLYC?MIES)
     Route: 058
  7. SITAGLIPTIN [Concomitant]
     Active Substance: SITAGLIPTIN
     Indication: Type 2 diabetes mellitus
     Dosage: 50 MILLIGRAM, ONCE A DAY
     Route: 048
  8. ELIQUIS [Concomitant]
     Active Substance: APIXABAN
     Indication: Thrombosis prophylaxis
     Dosage: 1 DOSAGE FORM, ONCE A DAY
     Route: 048
  9. ATENOLOL [Concomitant]
     Active Substance: ATENOLOL
     Indication: Atrial fibrillation
     Dosage: 50 MILLIGRAM, ONCE A DAY
     Route: 048

REACTIONS (3)
  - Lactic acidosis [Recovered/Resolved]
  - Potentiating drug interaction [Recovered/Resolved]
  - Drug level above therapeutic [Recovering/Resolving]

NARRATIVE: CASE EVENT DATE: 20220118
